FAERS Safety Report 21658575 (Version 1)
Quarter: 2022Q4

REPORT INFORMATION
  Report Type: Report from Study
  Country: US (occurrence: US)
  Receive Date: 20221129
  Receipt Date: 20221129
  Transmission Date: 20230113
  Serious: No
  Sender: FDA-Public Use
  Company Number: US-ABBVIE-4159714

PATIENT
  Sex: Female

DRUGS (1)
  1. HUMIRA [Suspect]
     Active Substance: ADALIMUMAB
     Indication: Product used for unknown indication
     Dosage: FORM STRENGTH: 40 MG
     Route: 058

REACTIONS (6)
  - Device issue [Not Recovered/Not Resolved]
  - Nasopharyngitis [Unknown]
  - Injection site pain [Unknown]
  - Fear of injection [Unknown]
  - Injection site paraesthesia [Recovering/Resolving]
  - Injection site warmth [Recovering/Resolving]
